FAERS Safety Report 9162066 (Version 1)
Quarter: 2013Q1

REPORT INFORMATION
  Report Type: Spontaneous
  Country: US (occurrence: None)
  Receive Date: 20130118
  Receipt Date: 20130118
  Transmission Date: 20140127
  Serious: Yes (Hospitalization)
  Sender: FDA-Public Use
  Company Number: 2013034442

PATIENT
  Age: 59 Year
  Sex: Female
  Weight: 56.7 kg

DRUGS (20)
  1. HIZENTRA [Suspect]
     Indication: IMMUNODEFICIENCY COMMON VARIABLE
     Dosage: (1 G EVERY 1 TO 2 HOURS ON 4 TO 6 SITES)
     Route: 058
     Dates: start: 20121226, end: 20121226
  2. LIDOCAINE/PRILOCAINE (EMLA /00675501/) [Concomitant]
  3. DIPHENHYDRAMINE (DIPHENHYDRAMINE) [Concomitant]
  4. ANAKIT (EPINEPHRINE) [Concomitant]
  5. EPIPEN (EPINEPHRINE) [Concomitant]
  6. KLONOPIN (CLONAZEPAM) (TABLETS) [Concomitant]
  7. AMBIEN (ZOLPIDEM TARTRATE) [Concomitant]
  8. TRILEPTA (OXCARBAZEPINE) [Concomitant]
  9. VITAMIN B COMPLEX W/C (VITAMIN B COMPLEX W/C AND CYANOCOBALAMIN) [Concomitant]
  10. FISH OIL (FISH OIL) [Concomitant]
  11. MULTIVITAMIN (MULTIVITAMIN /01229101/) [Concomitant]
  12. KELP (MACROCYSTIS PYRIFERA) [Concomitant]
  13. ASCRIPTIN (ASCRIPTIN /00058201/) [Concomitant]
  14. FLAX OIL (LINUM USITATISSIMUM SEED OIL) [Concomitant]
  15. OXYCONTIN (OXYCODONE HYDROCHLORIDE) [Concomitant]
  16. GLUCOSAMIN-MSM COMPLEX (GLUCOSAMINE) [Concomitant]
  17. BACLOFEN (BACLOFEN) [Concomitant]
  18. FOLIC ACID (FOLIC ACID) [Concomitant]
  19. FENTORA (FENTANYL CITRATE) [Concomitant]
  20. VITAMIN D (ERGOCALCIFEROL) [Concomitant]

REACTIONS (2)
  - Pulmonary oedema [None]
  - Infusion site reaction [None]
